FAERS Safety Report 8133937-0 (Version None)
Quarter: 2012Q1

REPORT INFORMATION
  Report Type: 
  Country: None (occurrence: None)
  Receive Date: 20120213
  Receipt Date: 20120131
  Transmission Date: 20120608
  Serious: Yes (Other)
  Sender: FDA-Public Use
  Company Number: US-CELGENEUS-163-50794-10100155

PATIENT

DRUGS (3)
  1. VIDAZA [Suspect]
     Dosage: 75-100 MG/METER SQUARED
     Route: 041
  2. ERLOTINIB HYDROCHLORIDE [Suspect]
     Dosage: 150 MILLIGRAM
     Route: 065
  3. VIDAZA [Suspect]
     Dosage: 100 MILLIGRAM/SQ. METER
     Route: 065

REACTIONS (27)
  - PNEUMONITIS [None]
  - DEHYDRATION [None]
  - CONJUNCTIVITIS [None]
  - DIARRHOEA [None]
  - VOMITING [None]
  - STOMATITIS [None]
  - DYSGEUSIA [None]
  - DRY SKIN [None]
  - PNEUMONIA [None]
  - DIVERTICULITIS [None]
  - NEUTROPENIA [None]
  - TRANSAMINASES INCREASED [None]
  - DERMATITIS ACNEIFORM [None]
  - INFECTION [None]
  - FATIGUE [None]
  - MUCOSAL INFLAMMATION [None]
  - NEUROPATHY PERIPHERAL [None]
  - URTICARIA [None]
  - THROMBOCYTOPENIA [None]
  - NEOPLASM PROGRESSION [None]
  - ESCHERICHIA BACTERAEMIA [None]
  - NAUSEA [None]
  - ANAEMIA [None]
  - INJECTION SITE REACTION [None]
  - NEUTROPENIC SEPSIS [None]
  - HYPOKALAEMIA [None]
  - ALOPECIA [None]
